FAERS Safety Report 12698720 (Version 3)
Quarter: 2016Q3

REPORT INFORMATION
  Report Type: Report from Study
  Country: US (occurrence: US)
  Receive Date: 20160830
  Receipt Date: 20160921
  Transmission Date: 20161109
  Serious: Yes (Other)
  Sender: FDA-Public Use
  Company Number: US-AMGEN-USASL2016111030

PATIENT
  Age: 58 Year
  Sex: Female

DRUGS (1)
  1. ENBREL [Suspect]
     Active Substance: ETANERCEPT
     Indication: JUVENILE IDIOPATHIC ARTHRITIS
     Dosage: 50 MG, QWK
     Route: 065
     Dates: start: 20080601

REACTIONS (5)
  - Hip arthroplasty [Unknown]
  - Ill-defined disorder [Unknown]
  - Spinal operation [Unknown]
  - Juvenile idiopathic arthritis [Not Recovered/Not Resolved]
  - Emotional distress [Unknown]
